FAERS Safety Report 6540251-3 (Version None)
Quarter: 2010Q1

REPORT INFORMATION
  Report Type: 
  Country: None (occurrence: None)
  Receive Date: 20100115
  Receipt Date: 20090707
  Transmission Date: 20100710
  Serious: No
  Sender: FDA-Public Use
  Company Number: US-ABBOTT-09P-163-0584342-00

PATIENT
  Sex: Male
  Weight: 70.37 kg

DRUGS (10)
  1. ADVICOR [Suspect]
     Indication: HIGH DENSITY LIPOPROTEIN DECREASED
     Dosage: FORM: 500/20 MILLIGRAMS
     Route: 048
     Dates: start: 20010101
  2. ADVICOR [Suspect]
     Dosage: 20/1000
     Route: 048
  3. DIOVAN [Concomitant]
     Indication: BLOOD PRESSURE
     Route: 048
  4. ALLOPURINOL [Concomitant]
     Indication: BLOOD URIC ACID
     Route: 048
  5. ALLOPURINOL [Concomitant]
     Indication: NEPHROLITHIASIS
  6. IRON [Concomitant]
     Indication: MINERAL SUPPLEMENTATION
     Dosage: UNSURE OF STRENGTH
     Route: 048
  7. MULTI-VITAMIN [Concomitant]
     Indication: VITAMIN SUPPLEMENTATION
     Route: 048
  8. FISH OIL [Concomitant]
     Indication: DRUG USE FOR UNKNOWN INDICATION
     Route: 048
  9. SODIUM BICARBONATE [Concomitant]
     Indication: BLOOD URIC ACID
     Route: 048
  10. CALCITRAL [Concomitant]
     Indication: MINERAL SUPPLEMENTATION
     Route: 048

REACTIONS (3)
  - BACK PAIN [None]
  - BLOOD CREATININE INCREASED [None]
  - MUSCULOSKELETAL STIFFNESS [None]
